FAERS Safety Report 14163049 (Version 2)
Quarter: 2018Q1

REPORT INFORMATION
  Report Type: Spontaneous
  Country: US (occurrence: US)
  Receive Date: 20171106
  Receipt Date: 20180119
  Transmission Date: 20180508
  Serious: Yes (Hospitalization)
  Sender: FDA-Public Use
  Company Number: US-VIFOR (INTERNATIONAL) INC.-VIT-2017-11990

PATIENT
  Age: 63 Year
  Sex: Male
  Weight: 83.99 kg

DRUGS (23)
  1. BENZATROPINE MESILATE [Concomitant]
     Active Substance: BENZTROPINE
  2. ROZEREM [Concomitant]
     Active Substance: RAMELTEON
  3. SIMETHICONE (DIMETHICONE) [Concomitant]
     Active Substance: DIMETHICONE
  4. SODIUM CARBONATE ANHYDROUS [Concomitant]
  5. VELTASSA [Suspect]
     Active Substance: PATIROMER
     Indication: HYPERKALAEMIA
     Route: 048
     Dates: start: 20170215
  6. CARBAMAZEPINE. [Concomitant]
     Active Substance: CARBAMAZEPINE
  7. FLOMAX [Concomitant]
     Active Substance: TAMSULOSIN HYDROCHLORIDE
  8. PHENOBARBITAL. [Concomitant]
     Active Substance: PHENOBARBITAL
  9. PHOSLO [Concomitant]
     Active Substance: CALCIUM ACETATE
  10. SODIUM POLYSTYRENE SULFONATE. [Concomitant]
     Active Substance: SODIUM POLYSTYRENE SULFONATE
  11. ANAFRANIL [Concomitant]
     Active Substance: CLOMIPRAMINE HYDROCHLORIDE
  12. DEPAKOTE [Concomitant]
     Active Substance: DIVALPROEX SODIUM
  13. CALCIUM ACETATE. [Concomitant]
     Active Substance: CALCIUM ACETATE
  14. METOLAZONE. [Concomitant]
     Active Substance: METOLAZONE
  15. ERGOCALCIFEROL. [Concomitant]
     Active Substance: ERGOCALCIFEROL
  16. SYNTHROID [Concomitant]
     Active Substance: LEVOTHYROXINE SODIUM
  17. RANITIDINE HYDROCHLORIDE. [Concomitant]
     Active Substance: RANITIDINE HYDROCHLORIDE
  18. LACTULOSE. [Concomitant]
     Active Substance: LACTULOSE
  19. MIRALAX [Concomitant]
     Active Substance: POLYETHYLENE GLYCOL 3350
  20. ACETAMINOPHEN. [Concomitant]
     Active Substance: ACETAMINOPHEN
  21. KLONOPIN [Concomitant]
     Active Substance: CLONAZEPAM
  22. SEROQUEL [Concomitant]
     Active Substance: QUETIAPINE FUMARATE
  23. ASCORBIC ACID~~PYRIDOXINE HYDROCHLORIDE~~BIOTIN~~FOLIC ACID~~THIAMINE HYDROCHLORIDE~~CYANOCOBALAMIN~ [Concomitant]

REACTIONS (3)
  - Jaundice [Recovered/Resolved]
  - Renal failure [Not Recovered/Not Resolved]
  - Mental disorder [Recovered/Resolved]

NARRATIVE: CASE EVENT DATE: 20171019
